FAERS Safety Report 7583713-2 (Version None)
Quarter: 2011Q2

REPORT INFORMATION
  Report Type: 
  Country: None (occurrence: None)
  Receive Date: 20110630
  Receipt Date: 20110624
  Transmission Date: 20111010
  Serious: Yes (Other)
  Sender: FDA-Public Use
  Company Number: B0728856A

PATIENT
  Sex: Female

DRUGS (4)
  1. PAROXETINE HCL [Suspect]
     Dosage: 20MG PER DAY
     Route: 048
     Dates: start: 20090101, end: 20101001
  2. DEPAKOTE [Concomitant]
     Route: 065
  3. METFORMIN HCL [Concomitant]
     Route: 065
  4. ZOLPIDEM [Concomitant]
     Route: 065

REACTIONS (1)
  - PRESBYACUSIS [None]
